FAERS Safety Report 9580790 (Version 2)
Quarter: 2013Q4

REPORT INFORMATION
  Report Type: Spontaneous
  Country: BR (occurrence: BR)
  Receive Date: 20131002
  Receipt Date: 20131115
  Transmission Date: 20140711
  Serious: Yes (Hospitalization)
  Sender: FDA-Public Use
  Company Number: BR-BIOMARINAP-BR-2013-101552

PATIENT
  Age: 18 Year
  Sex: Male
  Weight: 21 kg

DRUGS (1)
  1. NAGLAZYME [Suspect]
     Indication: MUCOPOLYSACCHARIDOSIS VI
     Dosage: 20 MG, UNK
     Route: 041
     Dates: start: 20060501

REACTIONS (2)
  - Cardiac failure [Recovering/Resolving]
  - Respiratory failure [Recovering/Resolving]
